FAERS Safety Report 5867208-X (Version None)
Quarter: 2008Q3

REPORT INFORMATION
  Report Type: 
  Country: None (occurrence: None)
  Receive Date: 20080829
  Receipt Date: 20080829
  Transmission Date: 20090109
  Serious: Yes (Other)
  Sender: FDA-Public Use
  Company Number: None

PATIENT

DRUGS (3)
  1. METHOTREXATE [Suspect]
  2. PIPERACILLIN AND TAZOBACTAM [Suspect]
  3. SEPTRA DS [Suspect]

REACTIONS (3)
  - ABSCESS [None]
  - DRUG CLEARANCE DECREASED [None]
  - DRUG INTERACTION [None]
